FAERS Safety Report 15232557 (Version 1)
Quarter: 2018Q3

REPORT INFORMATION
  Report Type: Spontaneous
  Country: FR (occurrence: FR)
  Receive Date: 20180802
  Receipt Date: 20180802
  Transmission Date: 20181010
  Serious: Yes (Hospitalization)
  Sender: FDA-Public Use
  Company Number: PHHY2018FR060355

PATIENT
  Age: 69 Year
  Sex: Male

DRUGS (6)
  1. ASPEGIC [Suspect]
     Active Substance: ASPIRIN DL-LYSINE
     Indication: THROMBOSIS PROPHYLAXIS
     Route: 048
  2. BACTRIM [Suspect]
     Active Substance: SULFAMETHOXAZOLE\TRIMETHOPRIM
     Indication: ANTIBIOTIC PROPHYLAXIS
     Dosage: 3 DF, QW
     Route: 048
     Dates: start: 20180514, end: 20180528
  3. REVLIMID [Suspect]
     Active Substance: LENALIDOMIDE
     Indication: PLASMA CELL MYELOMA
     Dosage: 1 DF, QD
     Route: 048
     Dates: start: 20180514, end: 20180528
  4. VALSARTAN. [Concomitant]
     Active Substance: VALSARTAN
     Indication: PRODUCT USED FOR UNKNOWN INDICATION
     Route: 065
  5. ORACILLINE [Suspect]
     Active Substance: PENICILLIN V
     Indication: ANTIBIOTIC PROPHYLAXIS
     Route: 065
  6. DEXAMETHASONE. [Suspect]
     Active Substance: DEXAMETHASONE
     Indication: PRODUCT USED FOR UNKNOWN INDICATION
     Dosage: UNK
     Route: 065

REACTIONS (1)
  - Pemphigus [Recovered/Resolved]

NARRATIVE: CASE EVENT DATE: 20180527
